FAERS Safety Report 14230158 (Version 2)
Quarter: 2017Q4

REPORT INFORMATION
  Report Type: Report from Study
  Country: None (occurrence: GB)
  Receive Date: 20171128
  Receipt Date: 20171201
  Transmission Date: 20180321
  Serious: Yes (Other)
  Sender: FDA-Public Use
  Company Number: GB-ABBVIE-17K-167-2174341-00

PATIENT
  Age: 81 Year
  Sex: Female

DRUGS (1)
  1. DUODOPA [Suspect]
     Active Substance: CARBIDOPA\LEVODOPA
     Indication: PARKINSON^S DISEASE
     Dosage: 100 ML CASSETTE
     Route: 050

REACTIONS (6)
  - Loss of consciousness [Unknown]
  - Device issue [Unknown]
  - Loss of personal independence in daily activities [Unknown]
  - Unresponsive to stimuli [Unknown]
  - Depressed mood [Unknown]
  - Constipation [Unknown]

NARRATIVE: CASE EVENT DATE: 201711
